FAERS Safety Report 23842019 (Version 2)
Quarter: 2024Q2

REPORT INFORMATION
  Report Type: Spontaneous
  Country: US (occurrence: US)
  Receive Date: 20240510
  Receipt Date: 20240627
  Transmission Date: 20240716
  Serious: Yes (Other)
  Sender: FDA-Public Use
  Company Number: US-PFIZER INC-202300223881

PATIENT
  Age: 12 Year
  Sex: Female
  Weight: 58.2 kg

DRUGS (6)
  1. OXBRYTA [Suspect]
     Active Substance: VOXELOTOR
     Dosage: 1500 MG, 1X/DAY
     Route: 048
     Dates: start: 2022, end: 20240319
  2. OXBRYTA [Suspect]
     Active Substance: VOXELOTOR
     Dosage: 300 MG TABLET FOR ORAL SUSPENSION, PREPARE 5 TABLETS, ONCE DAILY
     Route: 048
     Dates: start: 20220919
  3. ALBUTEROL SULFATE [Concomitant]
     Active Substance: ALBUTEROL SULFATE
     Dosage: UNK
  4. FOLIC ACID [Concomitant]
     Active Substance: FOLIC ACID
     Dosage: UNK
  5. FLOVENT [Concomitant]
     Active Substance: FLUTICASONE PROPIONATE
     Dosage: UNK
  6. HYDROXYUREA [Concomitant]
     Active Substance: HYDROXYUREA
     Dosage: 1500 MG, DAILY

REACTIONS (3)
  - Transfusion [Recovering/Resolving]
  - Carotid artery stenosis [Unknown]
  - Angiopathy [Unknown]

NARRATIVE: CASE EVENT DATE: 20230309
